FAERS Safety Report 24580788 (Version 1)
Quarter: 2024Q4

REPORT INFORMATION
  Report Type: Spontaneous
  Country: SK (occurrence: SK)
  Receive Date: 20241105
  Receipt Date: 20241105
  Transmission Date: 20250115
  Serious: Yes (Hospitalization, Other)
  Sender: BIOVITRUM
  Company Number: SK-BIOVITRUM-2024-SK-013260

PATIENT
  Age: 54 Year
  Sex: Female

DRUGS (1)
  1. DOPTELET [Suspect]
     Active Substance: AVATROMBOPAG MALEATE
     Indication: Immune thrombocytopenia
     Dosage: DOSE LEVEL 3 (20 MG THREE TIMES A WEEK)
     Dates: start: 20240816

REACTIONS (1)
  - Cerebral thrombosis [Unknown]
